FAERS Safety Report 19102995 (Version 2)
Quarter: 2021Q3

REPORT INFORMATION
  Report Type: Spontaneous
  Country: BR (occurrence: BR)
  Receive Date: 20210407
  Receipt Date: 20210907
  Transmission Date: 20211014
  Serious: Yes (Hospitalization, Other)
  Sender: FDA-Public Use
  Company Number: BR-GLAXOSMITHKLINE-BR2020AMR005272

PATIENT
  Sex: Male

DRUGS (7)
  1. NUCALA [Suspect]
     Active Substance: MEPOLIZUMAB
     Indication: ASTHMA
     Dosage: 100 MG, Z,EVERY 4 WEEKS
     Dates: start: 20191107, end: 20200402
  2. SYMBICORT [Suspect]
     Active Substance: BUDESONIDE\FORMOTEROL FUMARATE DIHYDRATE
     Indication: COUGH
  3. DUOVENT [Suspect]
     Active Substance: FENOTEROL HYDROBROMIDE
     Indication: ASTHMA
     Dosage: 4 PUFF(S), EVERY 4 HOURS
  4. DUOVENT [Suspect]
     Active Substance: FENOTEROL HYDROBROMIDE
     Indication: COUGH
     Dosage: 2 PUFF(S), EVERY 6 HOURS
  5. DUOVENT [Suspect]
     Active Substance: FENOTEROL HYDROBROMIDE
     Dosage: 2 PUFF(S), EVERY 4 HOURS
  6. SPIRIVA [Suspect]
     Active Substance: TIOTROPIUM BROMIDE MONOHYDRATE
     Indication: PRODUCT USED FOR UNKNOWN INDICATION
     Dosage: 2 PUFF(S), QD
  7. SYMBICORT [Suspect]
     Active Substance: BUDESONIDE\FORMOTEROL FUMARATE DIHYDRATE
     Indication: ASTHMA
     Dosage: 2 PUFF(S), BID,  6/200, EVERY 12H

REACTIONS (15)
  - Pneumonia [Recovered/Resolved]
  - Sinusitis [Unknown]
  - Product dose omission issue [Unknown]
  - Productive cough [Unknown]
  - Wheezing [Not Recovered/Not Resolved]
  - Abdominal discomfort [Unknown]
  - Weight fluctuation [Unknown]
  - Asthmatic crisis [Not Recovered/Not Resolved]
  - Cough [Unknown]
  - Asthma [Unknown]
  - Fatigue [Unknown]
  - Social problem [Unknown]
  - Therapy interrupted [Unknown]
  - Inappropriate schedule of product administration [Unknown]
  - Dyspnoea [Not Recovered/Not Resolved]
